FAERS Safety Report 10150033 (Version 1)
Quarter: 2014Q2

REPORT INFORMATION
  Report Type: Spontaneous
  Country: US (occurrence: US)
  Receive Date: 20140502
  Receipt Date: 20140502
  Transmission Date: 20141212
  Serious: Yes (Other)
  Sender: FDA-Public Use
  Company Number: US-TAKEDA-2014TUS003322

PATIENT
  Sex: Female
  Weight: 42.18 kg

DRUGS (2)
  1. PREVACID SOLUTAB [Suspect]
     Indication: GASTROOESOPHAGEAL REFLUX DISEASE
     Dosage: 30 MG, QD
     Route: 048
     Dates: start: 2006, end: 2012
  2. DILANTIN                           /00017401/ [Concomitant]

REACTIONS (4)
  - Rectal injury [Unknown]
  - Vulvovaginal injury [Unknown]
  - Crohn^s disease [Unknown]
  - Colitis ulcerative [Unknown]
